FAERS Safety Report 4322627-8 (Version None)
Quarter: 2004Q1

REPORT INFORMATION
  Report Type: 
  Country: None (occurrence: None)
  Receive Date: 20040319
  Receipt Date: 20040311
  Transmission Date: 20041129
  Serious: Yes (Other)
  Sender: FDA-Public Use
  Company Number: 2004-03-0734

PATIENT
  Age: 29 Year
  Sex: Female

DRUGS (2)
  1. AERIUS (DESLORATADINE) TABLETS LIKE CLARINEX [Suspect]
     Dosage: 5 MG QD ORAL
     Route: 048
     Dates: start: 20040201, end: 20040201
  2. AERIUS (DESLORATADINE) TABLETS [Suspect]

REACTIONS (2)
  - PALPITATIONS [None]
  - VENTRICULAR TACHYCARDIA [None]
